FAERS Safety Report 8171384-6 (Version None)
Quarter: 2012Q1

REPORT INFORMATION
  Report Type: 
  Country: None (occurrence: None)
  Receive Date: 20120104
  Receipt Date: 20110928
  Transmission Date: 20120608
  Serious: No
  Sender: FDA-Public Use
  Company Number: 2011HGS-002593

PATIENT
  Age: 58 Year
  Sex: Female
  Weight: 117.9352 kg

DRUGS (38)
  1. BENLYSTA [Suspect]
     Indication: SYSTEMIC LUPUS ERYTHEMATOSUS
     Dosage: 10 MG/KG, 1 IN 28 D, INTRAVENOUS DRIP
     Route: 041
     Dates: start: 20110705
  2. VALTREX [Concomitant]
  3. METOPROLOL TARTRATE [Concomitant]
  4. CELLCEPT [Concomitant]
  5. JANUVIA (ANTI-DIABETICS( (SITAGLIPTIN) [Concomitant]
  6. BYETTA SQ (ANTI-DIABETICS) (EXENTATIDE) [Concomitant]
  7. LISINOPRIL [Concomitant]
  8. FOLIC ACID [Concomitant]
  9. SPIRIVA [Concomitant]
  10. BUTRANS (BUPRENORPHINE) [Concomitant]
  11. PREDNISONE TAB [Concomitant]
  12. CELEBREX [Concomitant]
  13. LUMIGAN [Concomitant]
  14. LASIX (LASIX /SCH/ (FUROSEMIDE, FUROSEMIDE SODIUM) [Concomitant]
  15. DILAUDID [Concomitant]
  16. CALCIUM CARBONATE [Concomitant]
  17. SLOW-MAG (MAGNESIUM CHLORIDE ANHYDROUS) [Concomitant]
  18. BACTRIM DS (BACTRIM) (SULFAMETHOXAZOLE, TRIMETHOPRIM) [Concomitant]
  19. XANAX [Concomitant]
  20. FLOVENT [Concomitant]
  21. COUMADIN [Concomitant]
  22. ZOLOFT [Concomitant]
  23. TRAZODONE HCL [Concomitant]
  24. VITAMIN D [Concomitant]
  25. NITROGLYCERIN [Concomitant]
  26. SINGULAIR [Concomitant]
  27. LIDODERM [Concomitant]
  28. ALBUTEROL [Concomitant]
  29. FORTEO [Concomitant]
  30. ZOCOR [Concomitant]
  31. NORVASC [Concomitant]
  32. VITAMIN B12 [Concomitant]
  33. NORCO (VICODIN) (PARACETAMOL, HYDROCODONE BITARTRATE) [Concomitant]
  34. SYNTHROID [Concomitant]
  35. PROTONIX [Concomitant]
  36. SPIRONOLACTONE [Concomitant]
  37. VENTOLIN [Concomitant]
  38. GABAPENTIN [Concomitant]

REACTIONS (1)
  - NO ADVERSE EVENT [None]
